FAERS Safety Report 4948307-3 (Version None)
Quarter: 2006Q1

REPORT INFORMATION
  Report Type: 
  Country: None (occurrence: None)
  Receive Date: 20060320
  Receipt Date: 20060309
  Transmission Date: 20060701
  Serious: Yes (Other)
  Sender: FDA-Public Use
  Company Number: FR-ROCHE-439880

PATIENT
  Age: 50 Year
  Sex: Female

DRUGS (1)
  1. ROFERON-A [Suspect]
     Indication: DESMOID TUMOUR
     Route: 065

REACTIONS (3)
  - BLOOD IMMUNOGLOBULIN A INCREASED [None]
  - LIGHT CHAIN ANALYSIS [None]
  - LIGHT CHAIN ANALYSIS INCREASED [None]
